FAERS Safety Report 15196882 (Version 1)
Quarter: 2018Q3

REPORT INFORMATION
  Report Type: Spontaneous
  Country: JP (occurrence: JP)
  Receive Date: 20180725
  Receipt Date: 20180725
  Transmission Date: 20181010
  Serious: Yes (Other)
  Sender: FDA-Public Use
  Company Number: JP-ANIPHARMA-2018-JP-000122

PATIENT
  Age: 31 Year
  Sex: Male

DRUGS (1)
  1. PROPRANOLOL EXTENDED RELEASE CAPSULES (NON?SPECIFIC) [Suspect]
     Active Substance: PROPRANOLOL HYDROCHLORIDE
     Indication: HEART RATE ABNORMAL
     Dosage: 30 MG DAILY

REACTIONS (1)
  - Ventricular fibrillation [Unknown]
